FAERS Safety Report 24966944 (Version 1)
Quarter: 2025Q1

REPORT INFORMATION
  Report Type: Report from Study
  Country: US (occurrence: US)
  Receive Date: 20250213
  Receipt Date: 20250213
  Transmission Date: 20250408
  Serious: Yes (Hospitalization, Other)
  Sender: GILEAD
  Company Number: US-GILEAD-2025-0703454

PATIENT
  Sex: Female

DRUGS (1)
  1. AZTREONAM LYSINE [Suspect]
     Active Substance: AZTREONAM LYSINE
     Indication: Cystic fibrosis lung
     Dosage: 1 DOSAGE FORM, TID [FOR CYCLES OF 28 DAYS ON DRUG FOLLOWED BY 28 DAYS OFF DRUG]
     Route: 055

REACTIONS (2)
  - Viral infection [Unknown]
  - Infective pulmonary exacerbation of cystic fibrosis [Unknown]
